FAERS Safety Report 8584284-4 (Version None)
Quarter: 2012Q3

REPORT INFORMATION
  Report Type: 
  Country: None (occurrence: None)
  Receive Date: 20120810
  Receipt Date: 20120801
  Transmission Date: 20120928
  Serious: Yes (Other)
  Sender: FDA-Public Use
  Company Number: US-BIOGENIDEC-2012BI028885

PATIENT
  Sex: Female

DRUGS (2)
  1. AVONEX [Suspect]
     Indication: MULTIPLE SCLEROSIS
     Route: 030
     Dates: start: 19990113, end: 20110629
  2. AVONEX [Suspect]
     Route: 030
     Dates: start: 20120113, end: 20120206

REACTIONS (2)
  - DEAFNESS [None]
  - HYSTERECTOMY [None]
